FAERS Safety Report 14340799 (Version 2)
Quarter: 2018Q1

REPORT INFORMATION
  Report Type: Spontaneous
  Country: GR (occurrence: GR)
  Receive Date: 20180102
  Receipt Date: 20180122
  Transmission Date: 20180509
  Serious: Yes (Other)
  Sender: FDA-Public Use
  Company Number: GR-STRIDES ARCOLAB LIMITED-2017SP015095

PATIENT

DRUGS (1)
  1. VANCOMYCIN [Suspect]
     Active Substance: VANCOMYCIN
     Indication: PROPHYLAXIS
     Dosage: 1.0 MG/0.2 ML, INTRACAMERAL INJECTION
     Route: 031

REACTIONS (6)
  - Peripheral artery occlusion [Recovered/Resolved]
  - Haemorrhagic vasculitis [Recovered/Resolved]
  - Blindness [Recovered/Resolved]
  - Retinal vascular occlusion [Recovered/Resolved]
  - Retinal vasculitis [Recovered/Resolved]
  - Vitritis [Recovered/Resolved]
